FAERS Safety Report 5571958-2 (Version None)
Quarter: 2007Q4

REPORT INFORMATION
  Report Type: 
  Country: None (occurrence: None)
  Receive Date: 20071221
  Receipt Date: 20071212
  Transmission Date: 20080405
  Serious: Yes (Other)
  Sender: FDA-Public Use
  Company Number: ES-ABBOTT-07P-144-0428552-00

PATIENT
  Age: 57 Year
  Sex: Male

DRUGS (3)
  1. KALETRA [Suspect]
     Indication: HIV INFECTION
     Dates: start: 20020508, end: 20021223
  2. DIDANOSINE [Suspect]
     Indication: HIV INFECTION
     Dates: start: 20020508, end: 20021223
  3. STAVUDINE [Suspect]
     Indication: HIV INFECTION
     Dates: start: 20020508, end: 20021223

REACTIONS (1)
  - POLYNEUROPATHY [None]
